FAERS Safety Report 4464359-1 (Version None)
Quarter: 2004Q4

REPORT INFORMATION
  Report Type: 
  Country: None (occurrence: None)
  Receive Date: 20041001
  Receipt Date: 20040923
  Transmission Date: 20050328
  Serious: Yes (Disabling)
  Sender: FDA-Public Use
  Company Number: US-MERCK-0409USA02064

PATIENT
  Age: 35 Year
  Sex: Female

DRUGS (2)
  1. VIOXX [Suspect]
     Indication: PREOPERATIVE CARE
     Route: 048
     Dates: start: 20040921, end: 20040921
  2. VIOXX [Suspect]
     Indication: INFLAMMATION
     Route: 048
     Dates: start: 20040921, end: 20040921

REACTIONS (4)
  - COGNITIVE DISORDER [None]
  - DISSOCIATION [None]
  - MENTAL IMPAIRMENT [None]
  - VISION BLURRED [None]
